FAERS Safety Report 7651739-6 (Version None)
Quarter: 2011Q3

REPORT INFORMATION
  Report Type: 
  Country: None (occurrence: None)
  Receive Date: 20110802
  Receipt Date: 20110725
  Transmission Date: 20111222
  Serious: Yes (Hospitalization)
  Sender: FDA-Public Use
  Company Number: US-MERCK-1105USA01170

PATIENT
  Age: 59 Year
  Sex: Female

DRUGS (29)
  1. FOSAMAX [Suspect]
     Indication: OSTEOPOROSIS
     Route: 048
     Dates: start: 19980101, end: 20100401
  2. FLONASE [Concomitant]
     Indication: HYPERSENSITIVITY
     Route: 065
     Dates: start: 20040316, end: 20040615
  3. CHOLECALCIFEROL [Concomitant]
     Route: 065
     Dates: start: 19910101
  4. LYSINE HYDROCHLORIDE [Concomitant]
     Route: 065
     Dates: start: 19910101
  5. FOLIC ACID [Concomitant]
     Route: 065
     Dates: start: 19910101
  6. POLYSACCHARIDE IRON COMPLEX [Concomitant]
     Route: 065
     Dates: start: 19910101
  7. MENTAX [Concomitant]
     Indication: HYPERSENSITIVITY
     Route: 065
     Dates: start: 20040517
  8. UBIDECARENONE [Concomitant]
     Route: 065
     Dates: start: 20070101
  9. ALAVERT [Concomitant]
     Route: 065
  10. CELEBREX [Concomitant]
     Indication: OSTEOARTHRITIS
     Route: 065
  11. PREMPRO [Concomitant]
     Indication: MENOPAUSE
     Route: 065
     Dates: end: 20100501
  12. BEXTRA [Concomitant]
     Indication: OSTEOARTHRITIS
     Route: 065
     Dates: end: 20050101
  13. SINGULAIR [Concomitant]
     Indication: HYPERSENSITIVITY
     Route: 048
     Dates: start: 20040316
  14. FLONASE [Concomitant]
     Indication: SINUS DISORDER
     Route: 065
     Dates: start: 20040316, end: 20040615
  15. VITAMINS (UNSPECIFIED) [Concomitant]
     Route: 065
     Dates: start: 19860101
  16. ASCORBIC ACID [Concomitant]
     Route: 065
     Dates: start: 19910101
  17. MAGNESIUM (UNSPECIFIED) [Concomitant]
     Route: 065
     Dates: start: 19910101
  18. OXYCONTIN [Concomitant]
     Indication: BACK PAIN
     Route: 065
     Dates: start: 20010101, end: 20031201
  19. DURAGESIC-100 [Concomitant]
     Indication: BACK PAIN
     Route: 065
     Dates: start: 20040201, end: 20051201
  20. VITAMIN D (UNSPECIFIED) [Concomitant]
     Route: 065
     Dates: start: 19910101
  21. TOPROL-XL [Concomitant]
     Indication: HYPERTENSION
     Route: 065
     Dates: start: 20030129, end: 20030206
  22. HYDROCODONE BITARTRATE AND ACETAMINOPHEN [Concomitant]
     Indication: BACK PAIN
     Route: 065
     Dates: start: 20010101, end: 20031201
  23. IRON (UNSPECIFIED) [Concomitant]
     Route: 065
     Dates: start: 19910101
  24. METHADONE HYDROCHLORIDE [Concomitant]
     Indication: BACK PAIN
     Route: 065
     Dates: start: 20051201, end: 20100301
  25. HORMONES (UNSPECIFIED) [Concomitant]
     Indication: MENOPAUSE
     Route: 065
     Dates: start: 19900101, end: 20110501
  26. CALCIUM (UNSPECIFIED) [Concomitant]
     Route: 065
     Dates: start: 19910101
  27. OMEGA-3 MARINE TRIGLYCERIDES [Concomitant]
     Route: 065
     Dates: start: 19910101
  28. RESVERATROL [Concomitant]
     Route: 065
     Dates: start: 20090101
  29. IBUPROFEN [Concomitant]
     Route: 065

REACTIONS (17)
  - LEUKOCYTOSIS [None]
  - DIZZINESS [None]
  - RESPIRATORY TRACT INFECTION [None]
  - PHARYNGITIS [None]
  - MUSCLE SPASMS [None]
  - CONSTIPATION [None]
  - RIB FRACTURE [None]
  - FALL [None]
  - INTERVERTEBRAL DISC PROTRUSION [None]
  - BONE DEFORMITY [None]
  - NAUSEA [None]
  - FEMUR FRACTURE [None]
  - CARDIOVASCULAR DISORDER [None]
  - HYPOKALAEMIA [None]
  - OSTEOPENIA [None]
  - HYPERHIDROSIS [None]
  - HYPERTENSION [None]
